FAERS Safety Report 9562656 (Version 1)
Quarter: 2013Q3

REPORT INFORMATION
  Report Type: Spontaneous
  Country: US (occurrence: US)
  Receive Date: 20130927
  Receipt Date: 20130927
  Transmission Date: 20140515
  Serious: No
  Sender: FDA-Public Use
  Company Number: US-PFIZER INC-2013277192

PATIENT
  Age: 52 Year
  Sex: Male
  Weight: 88.44 kg

DRUGS (2)
  1. GABAPENTIN [Suspect]
     Indication: NEURALGIA
     Dosage: UNK
     Route: 048
     Dates: start: 1995
  2. GABAPENTIN [Suspect]
     Indication: NEURALGIA
     Dosage: 900 MG (BY TAKING 3 CAPSULES OF 300MG), 4X/DAY
     Route: 048

REACTIONS (1)
  - Drug ineffective [Unknown]
